FAERS Safety Report 7723501-7 (Version None)
Quarter: 2011Q3

REPORT INFORMATION
  Report Type: 
  Country: None (occurrence: None)
  Receive Date: 20110901
  Receipt Date: 20110829
  Transmission Date: 20111222
  Serious: No
  Sender: FDA-Public Use
  Company Number: US-PFIZER INC-2011201661

PATIENT
  Sex: Female
  Weight: 52.608 kg

DRUGS (5)
  1. NIFEDIPINE [Suspect]
     Dosage: UNK
     Dates: start: 20070201
  2. LISINOPRIL [Suspect]
     Dosage: UNK
     Dates: start: 20060401
  3. SYNTHROID [Concomitant]
     Indication: THYROID DISORDER
     Dosage: 88 UG, UNK
  4. TRIAMTERENE AND HYDROCHLOROTHIAZIDE [Suspect]
     Dosage: 3.75 MG, UNK
     Dates: start: 20070601
  5. PREMARIN [Concomitant]
     Dosage: 1.25 MG, UNK

REACTIONS (1)
  - SWELLING FACE [None]
